FAERS Safety Report 5267938-7 (Version None)
Quarter: 2007Q1

REPORT INFORMATION
  Report Type: 
  Country: None (occurrence: None)
  Receive Date: 20061213
  Receipt Date: 20020305
  Transmission Date: 20070707
  Serious: Yes (Disabling)
  Sender: FDA-Public Use
  Company Number: 2002UW00409

PATIENT
  Age: 55 Year
  Sex: Female
  Weight: 68.0396 kg

DRUGS (8)
  1. TAMOXIFEN CITRATE [Suspect]
     Indication: BREAST CANCER
     Dosage: 20 MG QD PO
     Route: 048
     Dates: start: 19970615, end: 20020101
  2. PRILOSEC [Concomitant]
  3. BELLERGAL [Concomitant]
  4. CATAPRES [Concomitant]
  5. TRIAVIL [Concomitant]
  6. CLARITIN [Concomitant]
  7. UNIPHYL [Concomitant]
  8. DARVOCET-N 100 [Concomitant]

REACTIONS (4)
  - BACK PAIN [None]
  - FLUSHING [None]
  - RIB FRACTURE [None]
  - SPINAL FRACTURE [None]
